FAERS Safety Report 11059666 (Version 1)
Quarter: 2015Q2

REPORT INFORMATION
  Report Type: Spontaneous
  Country: US (occurrence: US)
  Receive Date: 20150423
  Receipt Date: 20150423
  Transmission Date: 20150821
  Serious: No
  Sender: FDA-Public Use
  Company Number: US-BIOMARINAP-US-2015-106123

PATIENT
  Sex: Female
  Weight: 15.1 kg

DRUGS (1)
  1. VIMIZIM [Suspect]
     Active Substance: ELOSULFASE ALFA
     Indication: MUCOPOLYSACCHARIDOSIS VI
     Dosage: UNK, QW
     Route: 041
     Dates: start: 20140804

REACTIONS (1)
  - Weight increased [Not Recovered/Not Resolved]
